FAERS Safety Report 7501253-3 (Version None)
Quarter: 2011Q2

REPORT INFORMATION
  Report Type: 
  Country: None (occurrence: None)
  Receive Date: 20110524
  Receipt Date: 20110513
  Transmission Date: 20111010
  Serious: Yes (Other)
  Sender: FDA-Public Use
  Company Number: ZA-ELI_LILLY_AND_COMPANY-ZA201105004133

PATIENT
  Sex: Female

DRUGS (4)
  1. MACROPEN [Concomitant]
     Indication: INFECTION
     Dosage: 500 MG, TID
     Route: 048
     Dates: start: 20110510
  2. GLUCOPHAGE [Concomitant]
     Indication: DIABETES MELLITUS
     Dosage: 500 MG, BID
     Route: 048
     Dates: start: 20110511
  3. ZETOMAX [Concomitant]
     Indication: HYPERTENSION
     Dosage: 10 MG, QD
     Route: 048
     Dates: start: 20110510
  4. HUMULIN N [Suspect]
     Indication: DIABETES MELLITUS
     Dosage: 30 IU, BID
     Route: 058
     Dates: start: 20110510

REACTIONS (1)
  - ABDOMINAL PAIN UPPER [None]
